FAERS Safety Report 9255278 (Version 1)
Quarter: 2013Q1

REPORT INFORMATION
  Report Type: Spontaneous
  Country: US (occurrence: None)
  Receive Date: 20121203
  Receipt Date: 20121203
  Transmission Date: 20140127
  Serious: Yes (Hospitalization, Other)
  Sender: FDA-Public Use
  Company Number: 2012SP028991

PATIENT
  Age: 24 Year
  Sex: Female
  Weight: 79.4 kg

DRUGS (2)
  1. NUVARING (ETONORGESTREL (+) ETHINYL ESTRADIOL) VAGINAL RING [Suspect]
     Indication: CONTRACEPTION
     Dates: start: 20100617, end: 20100801
  2. NUVARING (ETONORGESTREL (+) ETHINYL ESTRADIOL) VAGINAL RING [Suspect]
     Indication: LIBIDO DECREASED
     Dates: start: 20100617, end: 20100801

REACTIONS (7)
  - Costochondritis [None]
  - Pulmonary embolism [None]
  - Depression [None]
  - Thrombosis [None]
  - Off label use [None]
  - Smear cervix abnormal [None]
  - Headache [None]
